FAERS Safety Report 7915411-7 (Version None)
Quarter: 2011Q4

REPORT INFORMATION
  Report Type: 
  Country: None (occurrence: None)
  Receive Date: 20111115
  Receipt Date: 20110804
  Transmission Date: 20120403
  Serious: No
  Sender: FDA-Public Use
  Company Number: US-BAYER-2011-071506

PATIENT
  Sex: Female

DRUGS (5)
  1. TAXOTERE [Concomitant]
     Indication: BREAST CANCER
     Dosage: UNK
     Dates: end: 20110726
  2. ALEVE (CAPLET) [Suspect]
     Indication: HEADACHE
  3. IBUPROFEN (ADVIL) [Concomitant]
     Indication: HEADACHE
  4. VITAMIN B COMPLEX CAP [Concomitant]
  5. GLUTAMINE [Concomitant]

REACTIONS (1)
  - HEADACHE [None]
